FAERS Safety Report 5993125-0 (Version None)
Quarter: 2008Q4

REPORT INFORMATION
  Report Type: 
  Country: None (occurrence: None)
  Receive Date: 20081212
  Receipt Date: 20080603
  Transmission Date: 20090506
  Serious: No
  Sender: FDA-Public Use
  Company Number: US-AMGEN-KDL284326

PATIENT
  Sex: Female

DRUGS (2)
  1. ENBREL [Suspect]
     Indication: RHEUMATOID ARTHRITIS
     Route: 058
     Dates: start: 20060501
  2. METHOTREXATE [Concomitant]

REACTIONS (6)
  - FALL [None]
  - INFLAMMATION [None]
  - LIGAMENT RUPTURE [None]
  - PHARYNGEAL ULCERATION [None]
  - PHARYNGITIS [None]
  - RHEUMATOID ARTHRITIS [None]
